FAERS Safety Report 16718765 (Version 1)
Quarter: 2019Q3

REPORT INFORMATION
  Report Type: Report from Study
  Country: DE (occurrence: DE)
  Receive Date: 20190820
  Receipt Date: 20190820
  Transmission Date: 20191005
  Serious: Yes (Hospitalization, Other)
  Sender: FDA-Public Use
  Company Number: DE-ACTELION-A-CH2019-194444

PATIENT
  Age: 78 Year
  Sex: Female

DRUGS (5)
  1. TADALAFIL. [Concomitant]
     Active Substance: TADALAFIL
  2. VELETRI [Suspect]
     Active Substance: EPOPROSTENOL
     Indication: PULMONARY ARTERIAL HYPERTENSION
     Dosage: 6.17 NG/KG, PER MIN
     Route: 042
     Dates: start: 20181126
  3. AMBRISENTAN [Concomitant]
     Active Substance: AMBRISENTAN
  4. TREPROSTINIL. [Concomitant]
     Active Substance: TREPROSTINIL
  5. VELETRI [Suspect]
     Active Substance: EPOPROSTENOL
     Dosage: 7.5 NG/KG, PER MIN
     Route: 042

REACTIONS (4)
  - Panic attack [Unknown]
  - Cardiac failure [Unknown]
  - Nocturnal dyspnoea [Unknown]
  - Respiratory tract infection [Recovered/Resolved]

NARRATIVE: CASE EVENT DATE: 20181219
